FAERS Safety Report 20277888 (Version 1)
Quarter: 2022Q1

REPORT INFORMATION
  Report Type: Spontaneous
  Country: IT (occurrence: IT)
  Receive Date: 20220103
  Receipt Date: 20220103
  Transmission Date: 20220423
  Serious: Yes (Hospitalization, Other)
  Sender: FDA-Public Use
  Company Number: None

PATIENT
  Age: 90 Year
  Sex: Male

DRUGS (10)
  1. PLAVIX [Suspect]
     Active Substance: CLOPIDOGREL BISULFATE
     Indication: Atrial fibrillation
     Dosage: 1 DF, QD
     Route: 048
     Dates: start: 20150101, end: 20210812
  2. FOLIC ACID [Concomitant]
     Active Substance: FOLIC ACID
  3. CORDARONE [Concomitant]
     Active Substance: AMIODARONE HYDROCHLORIDE
  4. PANTOPRAZOLE SODIUM [Concomitant]
     Active Substance: PANTOPRAZOLE SODIUM
  5. ALFUZOSIN [Concomitant]
     Active Substance: ALFUZOSIN
  6. CIPRALEX [Concomitant]
     Active Substance: ESCITALOPRAM OXALATE
  7. BISOPROLOL [Concomitant]
     Active Substance: BISOPROLOL
  8. LEVOTHYROXINE SODIUM [Concomitant]
     Active Substance: LEVOTHYROXINE SODIUM
  9. LASIX [Concomitant]
     Active Substance: FUROSEMIDE
  10. AVODART [Concomitant]
     Active Substance: DUTASTERIDE

REACTIONS (2)
  - Haemoglobinaemia [Recovered/Resolved]
  - Chest wall haematoma [Recovered/Resolved]

NARRATIVE: CASE EVENT DATE: 20210802
